FAERS Safety Report 14720969 (Version 1)
Quarter: 2018Q2

REPORT INFORMATION
  Report Type: Spontaneous
  Country: US (occurrence: US)
  Receive Date: 20180405
  Receipt Date: 20180405
  Transmission Date: 20180711
  Serious: No
  Sender: FDA-Public Use
  Company Number: US-009507513-1804USA001841

PATIENT
  Sex: Female

DRUGS (6)
  1. FOLLISTIM AQ [Suspect]
     Active Substance: FOLLITROPIN
     Indication: INFERTILITY FEMALE
     Dosage: UNK
  2. COENZYME Q10 PLUS VITAMIN E [Concomitant]
  3. ITRACONAZOLE. [Concomitant]
     Active Substance: ITRACONAZOLE
  4. ESTRADIOL. [Concomitant]
     Active Substance: ESTRADIOL
  5. TESTOSTERONE. [Concomitant]
     Active Substance: TESTOSTERONE
  6. ONDANSETRON [Concomitant]
     Active Substance: ONDANSETRON

REACTIONS (1)
  - Abdominal distension [Not Recovered/Not Resolved]

NARRATIVE: CASE EVENT DATE: 2018
